FAERS Safety Report 7257521-6 (Version None)
Quarter: 2011Q1

REPORT INFORMATION
  Report Type: 
  Country: None (occurrence: None)
  Receive Date: 20110129
  Receipt Date: 20100521
  Transmission Date: 20110831
  Serious: No
  Sender: FDA-Public Use
  Company Number: US-ABBOTT-10P-163-0646673-00

PATIENT
  Age: 70 Year
  Sex: Female

DRUGS (8)
  1. METOPROLOL [Concomitant]
     Indication: HYPERTENSION
  2. MULTI-VITAMIN [Concomitant]
     Indication: PRODUCT USED FOR UNKNOWN INDICATION
     Route: 048
  3. CALCIUM [Concomitant]
     Indication: OSTEOPOROSIS PROPHYLAXIS
     Route: 048
  4. HUMIRA [Suspect]
     Indication: PSORIASIS
     Dates: start: 20100407
  5. ARICEPT [Concomitant]
     Indication: MEMORY IMPAIRMENT
     Route: 048
  6. POTASSIUM [Concomitant]
     Indication: HYPOKALAEMIA
     Route: 048
  7. OXYBUTYNIN CHLORIDE [Concomitant]
     Indication: MICTURITION URGENCY
     Route: 048
  8. VITAMIN D [Concomitant]
     Indication: OSTEOPOROSIS PROPHYLAXIS
     Route: 048

REACTIONS (1)
  - RASH VESICULAR [None]
